FAERS Safety Report 5431276-X (Version None)
Quarter: 2007Q3

REPORT INFORMATION
  Report Type: 
  Country: None (occurrence: None)
  Receive Date: 20070828
  Receipt Date: 20070824
  Transmission Date: 20080115
  Serious: Yes (Other)
  Sender: FDA-Public Use
  Company Number: 012954

PATIENT
  Age: 27 Year
  Sex: Female

DRUGS (3)
  1. CLARAVIS [Suspect]
     Dosage: 40 MG, QOD, ORAL; 80 MG, QOD, ORAL
     Route: 048
     Dates: start: 20061101, end: 20070204
  2. CLARAVIS [Suspect]
     Dosage: 40 MG, QOD, ORAL; 80 MG, QOD, ORAL
     Route: 048
     Dates: start: 20061101
  3. ORAL CONTRACEPTIVE NOS (ORAL CONTRACEPTIVE NOS) [Concomitant]

REACTIONS (3)
  - DRUG EXPOSURE DURING PREGNANCY [None]
  - PREGNANCY ON ORAL CONTRACEPTIVE [None]
  - TREATMENT NONCOMPLIANCE [None]
